FAERS Safety Report 25564701 (Version 1)
Quarter: 2025Q3

REPORT INFORMATION
  Report Type: Spontaneous
  Country: EU (occurrence: EU)
  Receive Date: 20250716
  Receipt Date: 20250716
  Transmission Date: 20251021
  Serious: Yes (Other)
  Sender: ABBVIE
  Company Number: EU-RECORDATI-2025004875

PATIENT
  Sex: Male

DRUGS (1)
  1. CARIPRAZINE [Suspect]
     Active Substance: CARIPRAZINE
     Indication: Psychotic disorder
     Route: 048

REACTIONS (2)
  - Arrhythmia [Unknown]
  - Product use in unapproved indication [Unknown]
